FAERS Safety Report 16862032 (Version 1)
Quarter: 2019Q3

REPORT INFORMATION
  Report Type: Report from Study
  Country: CA (occurrence: CA)
  Receive Date: 20190927
  Receipt Date: 20190927
  Transmission Date: 20191005
  Serious: Yes (Other)
  Sender: FDA-Public Use
  Company Number: CA-HLSUS-2019-CA-001071

PATIENT
  Age: 37 Year
  Sex: Male

DRUGS (14)
  1. ZYPREXA [Concomitant]
     Active Substance: OLANZAPINE
     Dosage: 5 MG Q6H
     Route: 048
  2. HALDOL [Concomitant]
     Active Substance: HALOPERIDOL
     Dosage: 5MG Q4H PRN
     Route: 030
  3. TYLENOL [Concomitant]
     Active Substance: ACETAMINOPHEN
     Dosage: 650 MG PRN
     Route: 048
  4. CLOZARIL [Suspect]
     Active Substance: CLOZAPINE
     Indication: SCHIZOAFFECTIVE DISORDER
     Dosage: 100 MG
     Route: 048
     Dates: start: 20190816, end: 20190909
  5. SENNOSIDES. [Concomitant]
     Active Substance: SENNOSIDES
     Dosage: 8.6MG QHS
     Route: 048
  6. CARBOLITH [Concomitant]
     Active Substance: LITHIUM CARBONATE
     Dosage: 900 MG QHS
     Route: 048
  7. ATIVAN [Concomitant]
     Active Substance: LORAZEPAM
     Route: 048
  8. COGENTIN [Concomitant]
     Active Substance: BENZTROPINE MESYLATE
     Dosage: 2 MG Q#H PRN
     Route: 048
  9. COLACE [Concomitant]
     Active Substance: DOCUSATE SODIUM
     Dosage: 100 MG BID
     Route: 048
  10. ADVIL [Concomitant]
     Active Substance: IBUPROFEN
     Dosage: 400 MG Q4H PRN
     Route: 048
  11. ATIVAN [Concomitant]
     Active Substance: LORAZEPAM
     Dosage: 2 MG Q4H PRN
     Route: 030
  12. ABILIFY [Concomitant]
     Active Substance: ARIPIPRAZOLE
     Dosage: 10 MG QAM
     Route: 048
  13. RIVOTRIL [Concomitant]
     Active Substance: CLONAZEPAM
     Dosage: 1 MG QHS
     Route: 048
  14. HALDOL [Concomitant]
     Active Substance: HALOPERIDOL
     Dosage: 2MG BIC PRN
     Route: 048

REACTIONS (6)
  - Blood creatine phosphokinase increased [Unknown]
  - High density lipoprotein decreased [Unknown]
  - Troponin T increased [Unknown]
  - Pyrexia [Unknown]
  - Troponin I increased [Unknown]
  - Gamma-glutamyltransferase increased [Unknown]

NARRATIVE: CASE EVENT DATE: 20190907
